FAERS Safety Report 16164878 (Version 3)
Quarter: 2019Q2

REPORT INFORMATION
  Report Type: Spontaneous
  Country: JP (occurrence: JP)
  Receive Date: 20190405
  Receipt Date: 20190513
  Transmission Date: 20190711
  Serious: Yes (Hospitalization, Other)
  Sender: FDA-Public Use
  Company Number: JP-PFIZER INC-2019098783

PATIENT
  Age: 75 Year
  Sex: Male
  Weight: 56 kg

DRUGS (6)
  1. URSO [Concomitant]
     Active Substance: URSODIOL
     Indication: CHOLECYSTITIS
     Dosage: 100 MG, 3X/DAY
     Dates: start: 2012
  2. FAMOTIDINE. [Concomitant]
     Active Substance: FAMOTIDINE
     Indication: GASTRITIS
     Dosage: 10 MG, 2X/DAY
     Route: 048
     Dates: start: 2012
  3. CARBOCISTEINE [Concomitant]
     Active Substance: CARBOCYSTEINE
     Indication: BRONCHITIS
     Dosage: 500 MG, 3X/DAY
     Route: 048
     Dates: start: 2012
  4. ADOAIR [Concomitant]
     Active Substance: FLUTICASONE PROPIONATE\SALMETEROL XINAFOATE
     Indication: ASTHMA
     Dosage: 500 MG, 1X/DAY
     Dates: start: 2012
  5. LORBRENA [Suspect]
     Active Substance: LORLATINIB
     Indication: LUNG ADENOCARCINOMA
     Dosage: 100 MG, DAILY
     Route: 048
     Dates: start: 20190116, end: 20190305
  6. TEPRENONE [Concomitant]
     Active Substance: TEPRENONE
     Indication: GASTROENTERITIS
     Dosage: 50 MG, 3X/DAY
     Route: 048
     Dates: start: 2012

REACTIONS (2)
  - Blood cholesterol increased [Recovered/Resolved]
  - Cholecystitis acute [Recovering/Resolving]

NARRATIVE: CASE EVENT DATE: 20190227
